FAERS Safety Report 6393291-1 (Version None)
Quarter: 2009Q4

REPORT INFORMATION
  Report Type: 
  Country: None (occurrence: None)
  Receive Date: 20091008
  Receipt Date: 20090925
  Transmission Date: 20100525
  Serious: Yes (Other)
  Sender: FDA-Public Use
  Company Number: PHEH2009US11721

PATIENT
  Sex: Female

DRUGS (1)
  1. ZELNORM [Suspect]
     Indication: CONSTIPATION
     Dosage: 6 MG, BID
     Dates: start: 20090903, end: 20090918

REACTIONS (3)
  - ABDOMINAL DISTENSION [None]
  - DRUG INEFFECTIVE [None]
  - WEIGHT INCREASED [None]
